FAERS Safety Report 4816495-5 (Version None)
Quarter: 2005Q4

REPORT INFORMATION
  Report Type: 
  Country: None (occurrence: None)
  Receive Date: 20051028
  Receipt Date: 20051017
  Transmission Date: 20060501
  Serious: Yes (Hospitalization)
  Sender: FDA-Public Use
  Company Number: US016150

PATIENT
  Age: 22 Year
  Sex: Male

DRUGS (1)
  1. PROVIGIL [Suspect]
     Indication: NARCOLEPSY
     Dosage: 10000 MG ONCE ORAL
     Route: 048
     Dates: start: 20050927, end: 20050927

REACTIONS (8)
  - AMMONIA INCREASED [None]
  - BLOOD PRESSURE DECREASED [None]
  - INTENTIONAL DRUG MISUSE [None]
  - INTENTIONAL OVERDOSE [None]
  - METABOLIC ACIDOSIS [None]
  - RHABDOMYOLYSIS [None]
  - SUICIDAL IDEATION [None]
  - SUICIDE ATTEMPT [None]
